FAERS Safety Report 17422430 (Version 1)
Quarter: 2020Q1

REPORT INFORMATION
  Report Type: Spontaneous
  Country: CA (occurrence: CA)
  Receive Date: 20200215
  Receipt Date: 20200215
  Transmission Date: 20200409
  Serious: Yes (Other)
  Sender: FDA-Public Use
  Company Number: CA-TAKEDA-2020TUS010059

PATIENT
  Age: 44 Year
  Sex: Female

DRUGS (3)
  1. LORLATINIB [Concomitant]
     Active Substance: LORLATINIB
     Dosage: 100 MILLIGRAM, QD
     Route: 048
  2. ALUNBRIG [Suspect]
     Active Substance: BRIGATINIB
     Indication: NON-SMALL CELL LUNG CANCER
     Dosage: UNK
     Route: 065
  3. ALUNBRIG [Suspect]
     Active Substance: BRIGATINIB
     Indication: METASTASES TO CENTRAL NERVOUS SYSTEM

REACTIONS (1)
  - Metastases to central nervous system [Unknown]
